FAERS Safety Report 6098111-0 (Version None)
Quarter: 2009Q1

REPORT INFORMATION
  Report Type: 
  Country: None (occurrence: None)
  Receive Date: 20090227
  Receipt Date: 20080229
  Transmission Date: 20090719
  Serious: Yes (Hospitalization)
  Sender: FDA-Public Use
  Company Number: FR-RB-000251-08

PATIENT
  Sex: Female

DRUGS (1)
  1. SUBUTEX [Suspect]
     Indication: SELF-MEDICATION
     Route: 065
     Dates: start: 20060101

REACTIONS (7)
  - CAESAREAN SECTION [None]
  - DRUG DEPENDENCE [None]
  - DRUG DIVERSION [None]
  - DRUG EXPOSURE DURING PREGNANCY [None]
  - PREGNANCY [None]
  - PROLONGED PREGNANCY [None]
  - SELF-MEDICATION [None]
